FAERS Safety Report 6912491-2 (Version None)
Quarter: 2010Q3

REPORT INFORMATION
  Report Type: 
  Country: None (occurrence: None)
  Receive Date: 20100806
  Receipt Date: 20080621
  Transmission Date: 20110219
  Serious: No
  Sender: FDA-Public Use
  Company Number: US-PFIZER INC-2008047376

PATIENT
  Sex: Female
  Weight: 74.1 kg

DRUGS (8)
  1. DETROL LA [Suspect]
     Indication: INCONTINENCE
     Route: 048
     Dates: start: 19980101, end: 20080601
  2. DETROL LA [Suspect]
     Indication: MICTURITION URGENCY
  3. SEROQUEL [Concomitant]
  4. ZOCOR [Concomitant]
  5. ACETYLSALICYLIC ACID SRT [Concomitant]
  6. CELEXA [Concomitant]
  7. SYNTHROID [Concomitant]
  8. LYRICA [Concomitant]

REACTIONS (3)
  - PRURITUS [None]
  - RASH [None]
  - RASH MACULAR [None]
